FAERS Safety Report 5981816-7 (Version None)
Quarter: 2008Q4

REPORT INFORMATION
  Report Type: 
  Country: None (occurrence: None)
  Receive Date: 20081205
  Receipt Date: 20081202
  Transmission Date: 20090506
  Serious: Yes (Hospitalization)
  Sender: FDA-Public Use
  Company Number: US-GENENTECH-269389

PATIENT
  Age: 32 Year
  Sex: Male
  Weight: 61.5 kg

DRUGS (7)
  1. ERLOTINIB [Suspect]
     Indication: BILE DUCT CANCER
     Dosage: 150 MG, QD
     Route: 048
     Dates: start: 20070828
  2. BEVACIZUMAB [Suspect]
     Indication: BILE DUCT CANCER
     Dosage: 5 MG/KG, DAYS 1+15
     Route: 042
     Dates: start: 20070828
  3. OXYCONTIN [Concomitant]
     Indication: DRUG USE FOR UNKNOWN INDICATION
  4. LISINOPRIL [Concomitant]
     Indication: DRUG USE FOR UNKNOWN INDICATION
  5. AMBIEN [Concomitant]
     Indication: DRUG USE FOR UNKNOWN INDICATION
  6. ACTIQ [Concomitant]
     Indication: DRUG USE FOR UNKNOWN INDICATION
  7. METHADONE HCL [Concomitant]
     Indication: DRUG USE FOR UNKNOWN INDICATION

REACTIONS (1)
  - PNEUMOMEDIASTINUM [None]
